FAERS Safety Report 14608623 (Version 1)
Quarter: 2018Q1

REPORT INFORMATION
  Report Type: Spontaneous
  Country: US (occurrence: US)
  Receive Date: 20180307
  Receipt Date: 20180307
  Transmission Date: 20180509
  Serious: No
  Sender: FDA-Public Use
  Company Number: US-PTC THERAPEUTICS, INC.-US-2018PTC000132

PATIENT

DRUGS (6)
  1. EMFLAZA [Suspect]
     Active Substance: DEFLAZACORT
     Indication: DUCHENNE MUSCULAR DYSTROPHY
     Dosage: 1.0 ML, QD
     Route: 048
     Dates: start: 2017
  2. EMFLAZA [Suspect]
     Active Substance: DEFLAZACORT
     Dosage: 0.7 ML, QD
     Route: 048
  3. EMFLAZA [Suspect]
     Active Substance: DEFLAZACORT
     Dosage: 0.9 ML, QD
     Dates: start: 2017
  4. CALCIUM [Concomitant]
     Active Substance: CALCIUM
     Indication: PRODUCT USED FOR UNKNOWN INDICATION
  5. VITAMIN D                          /00107901/ [Concomitant]
     Active Substance: ERGOCALCIFEROL
     Indication: PRODUCT USED FOR UNKNOWN INDICATION
  6. EMFLAZA [Suspect]
     Active Substance: DEFLAZACORT
     Dosage: UNK
     Dates: start: 201704

REACTIONS (3)
  - Body temperature increased [Recovered/Resolved]
  - Gait inability [Unknown]
  - Asthenia [Unknown]

NARRATIVE: CASE EVENT DATE: 2017
